FAERS Safety Report 14237271 (Version 2)
Quarter: 2018Q1

REPORT INFORMATION
  Report Type: Spontaneous
  Country: US (occurrence: US)
  Receive Date: 20171129
  Receipt Date: 20180111
  Transmission Date: 20180508
  Serious: No
  Sender: FDA-Public Use
  Company Number: US-BIOGEN-2017BI00487059

PATIENT
  Sex: Male

DRUGS (1)
  1. PLEGRIDY [Suspect]
     Active Substance: PEGINTERFERON BETA-1A
     Indication: MULTIPLE SCLEROSIS
     Route: 065

REACTIONS (8)
  - Fall [Recovered/Resolved]
  - Scar excision [Unknown]
  - Asthenia [Unknown]
  - Dysarthria [Unknown]
  - Muscular weakness [Unknown]
  - Metamorphopsia [Unknown]
  - Infection [Unknown]
  - Multiple sclerosis relapse [Unknown]
